FAERS Safety Report 14600203 (Version 1)
Quarter: 2018Q1

REPORT INFORMATION
  Report Type: Spontaneous
  Country: CN (occurrence: CN)
  Receive Date: 20180305
  Receipt Date: 20180305
  Transmission Date: 20180509
  Serious: Yes (Other)
  Sender: FDA-Public Use
  Company Number: CN-MYLANLABS-2018M1013647

PATIENT
  Age: 5 Year
  Sex: Male

DRUGS (6)
  1. MESNA. [Suspect]
     Active Substance: MESNA
     Indication: EWING^S SARCOMA
     Dosage: 1.2G/M2; 2 CYCLES
     Route: 065
     Dates: end: 201504
  2. ADRIAMYCIN [Suspect]
     Active Substance: DOXORUBICIN HYDROCHLORIDE
     Indication: EWING^S SARCOMA
     Dosage: 50MG/M2; 2 CYCLES
     Route: 065
     Dates: end: 201504
  3. CYCLOPHOSPHAMIDE. [Suspect]
     Active Substance: CYCLOPHOSPHAMIDE
     Indication: EWING^S SARCOMA
     Dosage: 800MG/M2; 2 CYCLES
     Route: 065
     Dates: end: 201504
  4. IFOSFAMIDE. [Suspect]
     Active Substance: IFOSFAMIDE
     Indication: EWING^S SARCOMA
     Dosage: 1.2G/M2; 2 CYCLES
     Route: 065
     Dates: end: 201504
  5. VINCRISTINE [Suspect]
     Active Substance: VINCRISTINE
     Indication: EWING^S SARCOMA
     Dosage: 1MG/M2; 2 CYCLES
     Route: 065
     Dates: end: 201504
  6. ETOPOSIDE. [Suspect]
     Active Substance: ETOPOSIDE
     Indication: EWING^S SARCOMA
     Dosage: 70MG/M2; 2 CYCLES
     Route: 065
     Dates: end: 201504

REACTIONS (1)
  - Acute lymphocytic leukaemia [Unknown]
